FAERS Safety Report 18391753 (Version 1)
Quarter: 2020Q4

REPORT INFORMATION
  Report Type: Spontaneous
  Country: US (occurrence: US)
  Receive Date: 20201016
  Receipt Date: 20201016
  Transmission Date: 20210114
  Serious: No
  Sender: FDA-Public Use
  Company Number: None

PATIENT
  Age: 40 Year
  Sex: Female

DRUGS (13)
  1. MULTIVITAMIN [Concomitant]
     Active Substance: VITAMINS
  2. CURCUMIN [Concomitant]
     Active Substance: CURCUMIN
  3. THYROID SUPPORT [Concomitant]
     Active Substance: HOMEOPATHICS
  4. BUPROPION XL 150 [Suspect]
     Active Substance: BUPROPION
     Indication: DEPRESSION
     Dosage: ?          QUANTITY:30 TABLET(S);?
     Route: 048
     Dates: start: 20201009
  5. FLUOXETINE [Concomitant]
     Active Substance: FLUOXETINE HYDROCHLORIDE
  6. TURMERIC [Concomitant]
     Active Substance: HERBALS\TURMERIC
  7. CINNAMON. [Concomitant]
     Active Substance: CINNAMON
  8. VITEX BERRY [Concomitant]
  9. BUPROPION XL 150 [Suspect]
     Active Substance: BUPROPION
     Indication: INSOMNIA
     Dosage: ?          QUANTITY:30 TABLET(S);?
     Route: 048
     Dates: start: 20201009
  10. FLORASTOR PROBIOTIC [Concomitant]
  11. DIM [Concomitant]
  12. INFLIXIMAB [Concomitant]
     Active Substance: INFLIXIMAB
  13. MELATONIN [Concomitant]
     Active Substance: MELATONIN

REACTIONS (5)
  - Drug withdrawal syndrome [None]
  - Insomnia [None]
  - Product substitution issue [None]
  - Drug ineffective [None]
  - Irritability [None]

NARRATIVE: CASE EVENT DATE: 20201014
